FAERS Safety Report 15827003 (Version 3)
Quarter: 2019Q1

REPORT INFORMATION
  Report Type: Spontaneous
  Country: DE (occurrence: DE)
  Receive Date: 20190115
  Receipt Date: 20190219
  Transmission Date: 20190417
  Serious: Yes (Hospitalization, Other)
  Sender: FDA-Public Use
  Company Number: DE-ASTRAZENECA-2019SE04779

PATIENT
  Sex: Male

DRUGS (5)
  1. DAXAS [Interacting]
     Active Substance: ROFLUMILAST
     Indication: CHRONIC OBSTRUCTIVE PULMONARY DISEASE
     Route: 048
     Dates: start: 201812
  2. CARBAMAZEPIN RETARD [Interacting]
     Active Substance: CARBAMAZEPINE
     Indication: EPILEPSY
     Dosage: INTAKE ALREADY SINCE 20 YEARS
     Route: 065
  3. SPIRIVA [Concomitant]
     Active Substance: TIOTROPIUM BROMIDE MONOHYDRATE
     Indication: CHRONIC OBSTRUCTIVE PULMONARY DISEASE
  4. RELVAR ELLIPTA [Concomitant]
     Active Substance: FLUTICASONE FUROATE\VILANTEROL TRIFENATATE
     Indication: CHRONIC OBSTRUCTIVE PULMONARY DISEASE
  5. DAXAS [Suspect]
     Active Substance: ROFLUMILAST
     Indication: CHRONIC OBSTRUCTIVE PULMONARY DISEASE
     Route: 048
     Dates: start: 2017, end: 201812

REACTIONS (11)
  - Mental disorder [Recovered/Resolved]
  - Irritability [Recovered/Resolved]
  - Dyspnoea [Unknown]
  - Pneumonitis [Unknown]
  - Productive cough [Unknown]
  - Klebsiella infection [Unknown]
  - Fatigue [Recovered/Resolved]
  - Staphylococcal infection [Unknown]
  - Rales [Unknown]
  - Drug interaction [Unknown]
  - Escherichia infection [Unknown]

NARRATIVE: CASE EVENT DATE: 2018
